FAERS Safety Report 21591575 (Version 1)
Quarter: 2022Q4

REPORT INFORMATION
  Report Type: Spontaneous
  Country: CN (occurrence: CN)
  Receive Date: 20221114
  Receipt Date: 20221114
  Transmission Date: 20230113
  Serious: Yes (Hospitalization)
  Sender: FDA-Public Use
  Company Number: None

PATIENT
  Age: 60 Year
  Sex: Female
  Weight: 73 kg

DRUGS (6)
  1. CYCLOPHOSPHAMIDE [Suspect]
     Active Substance: CYCLOPHOSPHAMIDE
     Indication: Neoplasm malignant
     Dosage: 1000 MG, QD (ROUTE: INTRA-PUMP INJECTION) DILUTED WITH 100 ML OF SODIUM CHLORIDE
     Route: 050
     Dates: start: 20221006, end: 20221006
  2. SODIUM CHLORIDE [Suspect]
     Active Substance: SODIUM CHLORIDE
     Indication: Medication dilution
     Dosage: 100 ML, QD (ROUTE- INTRA-PUMP INJECTION) USED TO DILUTE EPIRUBICIN HYDROCHLORIDE 100 MG
     Route: 050
     Dates: start: 20221006, end: 20221006
  3. EPIRUBICIN HYDROCHLORIDE [Suspect]
     Active Substance: EPIRUBICIN HYDROCHLORIDE
     Indication: Neoplasm malignant
     Dosage: 100 MG, QD (ROUTE: INTRA-PUMP INJECTION) DILUTED WITH 100 ML OF SODIUM CHLORIDE
     Route: 050
     Dates: start: 20221006, end: 20221006
  4. EPIRUBICIN HYDROCHLORIDE [Suspect]
     Active Substance: EPIRUBICIN HYDROCHLORIDE
     Dosage: 60 MG, QD (ROUTE-INTRA-PUMP INJECTION) DILUTED WITH 100 ML OF SODIUM CHLORIDE
     Route: 050
     Dates: start: 20221007, end: 20221007
  5. SODIUM CHLORIDE [Concomitant]
     Active Substance: SODIUM CHLORIDE
     Indication: Vehicle solution use
     Dosage: 100 ML, QD (ROUTE: INTRA-PUMP INJECTION) USED TO DILUTE CYCLOPHOSPHAMIDE 1000 MG
     Route: 050
     Dates: start: 20221006, end: 20221006
  6. SODIUM CHLORIDE [Concomitant]
     Active Substance: SODIUM CHLORIDE
     Dosage: 100 ML, QD (ROUTE: INTRA-PUMP INJECTION) ) USED TO DILUTE EPIRUBICIN HYDROCHLORIDE 60 MG
     Route: 050
     Dates: start: 20221007, end: 20221007

REACTIONS (1)
  - White blood cell count decreased [Recovered/Resolved]

NARRATIVE: CASE EVENT DATE: 20221010
